FAERS Safety Report 10688428 (Version 1)
Quarter: 2014Q4

REPORT INFORMATION
  Report Type: Spontaneous
  Country: GR (occurrence: None)
  Receive Date: 20141231
  Receipt Date: 20141231
  Transmission Date: 20150529
  Serious: Yes (Death)
  Sender: FDA-Public Use
  Company Number: NGX_02695_2014

PATIENT
  Sex: Male

DRUGS (1)
  1. QUTENZA [Suspect]
     Active Substance: CAPSAICIN
     Indication: NEUROPATHY PERIPHERAL
     Dosage: CUTANEOUS PATCH
     Route: 062
     Dates: start: 20141205, end: 20141205

REACTIONS (1)
  - Neuralgia [None]

NARRATIVE: CASE EVENT DATE: 201412
